FAERS Safety Report 10631076 (Version 3)
Quarter: 2015Q1

REPORT INFORMATION
  Report Type: Spontaneous
  Country: US (occurrence: US)
  Receive Date: 20141205
  Receipt Date: 20150219
  Transmission Date: 20150720
  Serious: Yes (Hospitalization)
  Sender: FDA-Public Use
  Company Number: US-PFIZER INC-2014330922

PATIENT
  Age: 73 Year
  Sex: Female
  Weight: 39 kg

DRUGS (5)
  1. PREMARIN [Suspect]
     Active Substance: ESTROGENS, CONJUGATED
     Indication: HORMONE REPLACEMENT THERAPY
     Dosage: 1.25 MG, 1X/DAY
     Dates: start: 198009, end: 200712
  2. IRON [Concomitant]
     Active Substance: IRON
     Indication: BLOOD IRON ABNORMAL
  3. PREMARIN [Suspect]
     Active Substance: ESTROGENS, CONJUGATED
     Dosage: 0.45 MG, 1X/DAY
     Dates: start: 200801
  4. IRON [Concomitant]
     Active Substance: IRON
     Indication: ANAEMIA
     Dosage: UNK, 1X/DAY
  5. CENTRUM ADULTS [Concomitant]
     Dosage: UNK

REACTIONS (4)
  - Blood pressure abnormal [Recovered/Resolved]
  - Drug ineffective [Recovered/Resolved]
  - Heart rate abnormal [Recovered/Resolved]
  - Fatigue [Recovered/Resolved]

NARRATIVE: CASE EVENT DATE: 2008
